FAERS Safety Report 5121538-8 (Version None)
Quarter: 2006Q4

REPORT INFORMATION
  Report Type: 
  Country: None (occurrence: None)
  Receive Date: 20061006
  Receipt Date: 20060926
  Transmission Date: 20070319
  Serious: Yes (Other)
  Sender: FDA-Public Use
  Company Number: 2006UW18787

PATIENT
  Age: 79 Year
  Sex: Female

DRUGS (1)
  1. NOLVADEX [Suspect]
     Indication: BREAST CANCER
     Route: 048
     Dates: end: 20060701

REACTIONS (4)
  - BLISTER [None]
  - CONTUSION [None]
  - RASH [None]
  - SKIN EXFOLIATION [None]
